FAERS Safety Report 8415725-0 (Version None)
Quarter: 2012Q2

REPORT INFORMATION
  Report Type: 
  Country: None (occurrence: None)
  Receive Date: 20120530
  Receipt Date: 20120518
  Transmission Date: 20120825
  Serious: Yes (Hospitalization, Other)
  Sender: FDA-Public Use
  Company Number: AUR-APL-2012-02383

PATIENT
  Age: 66 Year
  Sex: Female

DRUGS (6)
  1. DILTIAZEM [Concomitant]
  2. QUETIAPINE FUMARATE [Suspect]
     Indication: PRODUCT USED FOR UNKNOWN INDICATION
     Dosage: 100 MG (100 MG, 1 IN 1 D), UNKNOWN
  3. MEMANTINE HCL [Concomitant]
  4. ALENDRONATE SODIUM [Concomitant]
  5. SIMVASTATIN [Concomitant]
  6. DONEPEZIL HCL [Concomitant]

REACTIONS (11)
  - HYPOPHAGIA [None]
  - HYPERGLYCAEMIC HYPEROSMOLAR NONKETOTIC SYNDROME [None]
  - DEHYDRATION [None]
  - MENTAL STATUS CHANGES [None]
  - MIOSIS [None]
  - UNRESPONSIVE TO STIMULI [None]
  - MUSCLE TWITCHING [None]
  - HYPERNATRAEMIA [None]
  - RENAL FAILURE ACUTE [None]
  - ASTHENIA [None]
  - ACUTE MYOCARDIAL INFARCTION [None]
